FAERS Safety Report 11685072 (Version 16)
Quarter: 2018Q1

REPORT INFORMATION
  Report Type: Report from Study
  Country: GB (occurrence: GB)
  Receive Date: 20151030
  Receipt Date: 20180101
  Transmission Date: 20180508
  Serious: Yes (Hospitalization, Other)
  Sender: FDA-Public Use
  Company Number: GB-ROCHE-1649840

PATIENT
  Age: 72 Year
  Sex: Female
  Weight: 62.7 kg

DRUGS (9)
  1. GENTAMICIN. [Concomitant]
     Active Substance: GENTAMICIN
     Route: 065
     Dates: start: 201510, end: 201510
  2. LAXIDO [Concomitant]
     Active Substance: POLYETHYLENE GLYCOL 3350\POTASSIUM CHLORIDE\SODIUM BICARBONATE\SODIUM CHLORIDE
     Dosage: 6 SACHETS DAILY
     Route: 065
     Dates: start: 2015
  3. EPREX [Concomitant]
     Active Substance: ERYTHROPOIETIN
     Dosage: 30,000 UNITS/ 0.75ML
     Route: 058
     Dates: start: 201507
  4. BEVACIZUMAB. [Suspect]
     Active Substance: BEVACIZUMAB
     Dosage: DATE OF LAST DOSE PRIOR TO SAE HYPERTENSIVE ENCEPHALOPATHY: 15/OCT/2015
     Route: 042
     Dates: start: 20150903, end: 20151020
  5. PARACETAMOL [Concomitant]
     Active Substance: ACETAMINOPHEN
     Route: 065
     Dates: start: 20151024, end: 2015
  6. BEVACIZUMAB. [Suspect]
     Active Substance: BEVACIZUMAB
     Indication: OVARIAN CANCER
     Dosage: MOST RECENT DOSE OF BEVACIZUMAB PRIOR TO FIRST EPISODE OF HYPERTENSION: 23/JUL/2015
     Route: 042
     Dates: start: 20150409, end: 20150813
  7. CO-DYDRAMOL [Concomitant]
     Active Substance: ACETAMINOPHEN\DIHYDROCODEINE
     Dosage: 30MG/1.5G
     Route: 065
     Dates: start: 20150811
  8. SITAGLIPTIN [Concomitant]
     Active Substance: SITAGLIPTIN
     Route: 065
     Dates: start: 2014
  9. PROPANOLOL [Concomitant]
     Active Substance: PROPRANOLOL HYDROCHLORIDE
     Dosage: DAILY
     Route: 065
     Dates: start: 2014

REACTIONS (3)
  - Hypertensive encephalopathy [Recovered/Resolved]
  - Transient ischaemic attack [Recovered/Resolved]
  - Hypertension [Not Recovered/Not Resolved]

NARRATIVE: CASE EVENT DATE: 20150813
